FAERS Safety Report 9358343 (Version 1)
Quarter: 2013Q2

REPORT INFORMATION
  Report Type: Spontaneous
  Country: US (occurrence: US)
  Receive Date: 20130620
  Receipt Date: 20130620
  Transmission Date: 20140414
  Serious: Yes (Other)
  Sender: FDA-Public Use
  Company Number: US-JNJFOC-20130607771

PATIENT
  Age: 54 Year
  Sex: Female
  Weight: 24.49 kg

DRUGS (3)
  1. TOPAMAX [Suspect]
     Indication: MIGRAINE
     Route: 048
     Dates: start: 20130609
  2. TOPAMAX [Suspect]
     Indication: MIGRAINE
     Route: 048
     Dates: start: 2003
  3. TOPIRAMATE [Suspect]
     Indication: MIGRAINE
     Route: 048
     Dates: end: 20130608

REACTIONS (14)
  - Mental disorder [Unknown]
  - Hepatic steatosis [Unknown]
  - Intestinal obstruction [Not Recovered/Not Resolved]
  - Abnormal loss of weight [Unknown]
  - Bedridden [Unknown]
  - Discomfort [Not Recovered/Not Resolved]
  - Amnesia [Not Recovered/Not Resolved]
  - Depression [Unknown]
  - Decreased appetite [Unknown]
  - Drug ineffective [Not Recovered/Not Resolved]
  - Insomnia [Not Recovered/Not Resolved]
  - Vomiting [Not Recovered/Not Resolved]
  - Diarrhoea [Not Recovered/Not Resolved]
  - Malaise [Not Recovered/Not Resolved]
